FAERS Safety Report 4515449-6 (Version None)
Quarter: 2004Q4

REPORT INFORMATION
  Report Type: 
  Country: None (occurrence: None)
  Receive Date: 20041126
  Receipt Date: 20041116
  Transmission Date: 20050328
  Serious: Yes (Death)
  Sender: FDA-Public Use
  Company Number: 2004093208

PATIENT

DRUGS (1)
  1. NEURONTIN [Suspect]
     Indication: PARTIAL SEIZURES

REACTIONS (1)
  - COMPLETED SUICIDE [None]
